FAERS Safety Report 9886364 (Version 1)
Quarter: 2014Q1

REPORT INFORMATION
  Report Type: Spontaneous
  Country: DE (occurrence: DE)
  Receive Date: 20140210
  Receipt Date: 20140210
  Transmission Date: 20141002
  Serious: Yes (Hospitalization)
  Sender: FDA-Public Use
  Company Number: PHHY2014DE014777

PATIENT
  Sex: Male

DRUGS (2)
  1. EXELON [Suspect]
     Indication: PARKINSON^S DISEASE
     Dosage: 4.5 MG, BID
     Route: 048
  2. EXELON [Suspect]
     Dosage: 4.5 MG, BID (VIA TUBE)

REACTIONS (1)
  - Wrong technique in drug usage process [Unknown]
